FAERS Safety Report 10357147 (Version 2)
Quarter: 2014Q3

REPORT INFORMATION
  Report Type: Spontaneous
  Country: JP (occurrence: JP)
  Receive Date: 20140801
  Receipt Date: 20140801
  Transmission Date: 20150326
  Serious: Yes (Hospitalization)
  Sender: FDA-Public Use
  Company Number: JP-DSJP-DSJ-2014-112185

PATIENT

DRUGS (2)
  1. OLMETEC [Suspect]
     Active Substance: OLMESARTAN MEDOXOMIL
     Indication: HYPERTENSION
     Dosage: 20MG/DAY
     Route: 048
     Dates: start: 20130319
  2. ADALAT CC [Concomitant]
     Active Substance: NIFEDIPINE
     Dosage: 20MG/DAY
     Route: 048
     Dates: start: 20010420

REACTIONS (1)
  - Enterocolitis bacterial [Recovering/Resolving]

NARRATIVE: CASE EVENT DATE: 20130412
